FAERS Safety Report 4494645-0 (Version None)
Quarter: 2004Q4

REPORT INFORMATION
  Report Type: 
  Country: None (occurrence: None)
  Receive Date: 20041103
  Receipt Date: 20041029
  Transmission Date: 20050328
  Serious: Yes (Hospitalization)
  Sender: FDA-Public Use
  Company Number: 2004-06-0062

PATIENT
  Age: 14 Year
  Sex: Male

DRUGS (2)
  1. REBETOL [Suspect]
     Dosage: ORAL
     Route: 048
     Dates: start: 20040208, end: 20040215
  2. METHOTREXATE [Suspect]
     Indication: T-CELL LYMPHOMA
     Dosage: ^HIGH DOSE^ INTRAVENOUS
     Route: 042
     Dates: start: 20040216, end: 20040216

REACTIONS (4)
  - DRUG INTERACTION [None]
  - DRUG LEVEL INCREASED [None]
  - PH URINE DECREASED [None]
  - RENAL IMPAIRMENT [None]
